FAERS Safety Report 8071432-8 (Version None)
Quarter: 2012Q1

REPORT INFORMATION
  Report Type: 
  Country: None (occurrence: None)
  Receive Date: 20120125
  Receipt Date: 20120116
  Transmission Date: 20120608
  Serious: Yes (Hospitalization, Other)
  Sender: FDA-Public Use
  Company Number: TW-PURDUE-USA-2012-0080904

PATIENT
  Age: 43 Year
  Sex: Female

DRUGS (2)
  1. ZOLPIDEM TARTRATE [Suspect]
     Indication: INSOMNIA
     Dosage: 50-60MG
  2. ZOLPIDEM TARTRATE [Suspect]
     Dosage: 200-400MG PER NIGHT AS NEEDED

REACTIONS (4)
  - TONIC CONVULSION [None]
  - DRUG WITHDRAWAL SYNDROME [None]
  - DRUG DEPENDENCE [None]
  - DRUG TOLERANCE [None]
